FAERS Safety Report 26144551 (Version 2)
Quarter: 2025Q4

REPORT INFORMATION
  Report Type: Spontaneous
  Country: JP (occurrence: JP)
  Receive Date: 20251211
  Receipt Date: 20251218
  Transmission Date: 20260117
  Serious: Yes (Hospitalization, Other)
  Sender: SANOFI AVENTIS
  Company Number: JP-DialogSolutions-SAAVPROD-PI852816-C1

PATIENT
  Age: 6 Month
  Sex: Male

DRUGS (2)
  1. NIRSEVIMAB [Suspect]
     Active Substance: NIRSEVIMAB
     Indication: Immunisation
     Dosage: UNK
  2. HUMAN IMMUNOGLOBULIN G [Suspect]
     Active Substance: HUMAN IMMUNOGLOBULIN G
     Indication: Kawasaki^s disease
     Dosage: 2 G/KG
     Route: 042

REACTIONS (10)
  - Respiratory syncytial virus bronchiolitis [Recovered/Resolved]
  - Treatment failure [Recovered/Resolved]
  - Pyrexia [Recovered/Resolved]
  - Cough [Recovered/Resolved]
  - Rhinorrhoea [Recovered/Resolved]
  - Wheezing [Recovered/Resolved]
  - Hypoxia [Recovered/Resolved]
  - Tachypnoea [Recovered/Resolved]
  - Respiratory distress [Recovered/Resolved]
  - Inhibitory drug interaction [Recovered/Resolved]
